FAERS Safety Report 5178596-4 (Version None)
Quarter: 2006Q4

REPORT INFORMATION
  Report Type: 
  Country: None (occurrence: None)
  Receive Date: 20061218
  Receipt Date: 20060816
  Transmission Date: 20070319
  Serious: No
  Sender: FDA-Public Use
  Company Number: US-AMGEN-KDL190269

PATIENT
  Sex: Male

DRUGS (3)
  1. ENBREL [Suspect]
     Indication: RHEUMATOID ARTHRITIS
     Route: 058
     Dates: start: 20050301
  2. ARAVA [Concomitant]
     Dates: start: 20020101
  3. AZULFIDINE [Concomitant]
     Dates: start: 20000101

REACTIONS (2)
  - PRODUCTIVE COUGH [None]
  - RESPIRATORY TRACT INFECTION [None]
